FAERS Safety Report 7072057-3 (Version None)
Quarter: 2010Q4

REPORT INFORMATION
  Report Type: 
  Country: None (occurrence: None)
  Receive Date: 20101029
  Receipt Date: 20101027
  Transmission Date: 20110411
  Serious: Yes (Life-Threatening, Other)
  Sender: FDA-Public Use
  Company Number: PHHY2010CA66114

PATIENT

DRUGS (5)
  1. STALEVO 100 [Suspect]
     Indication: PARKINSON'S DISEASE
     Dosage: 100/25/200 QID
     Route: 048
     Dates: start: 20100201, end: 20100401
  2. ROPINIROLE [Concomitant]
  3. EZETROL [Concomitant]
  4. AMANTADINE [Concomitant]
  5. SINEMET [Concomitant]
     Dosage: 100/25

REACTIONS (3)
  - COLONIC PSEUDO-OBSTRUCTION [None]
  - DIARRHOEA [None]
  - OEDEMA [None]
